FAERS Safety Report 19360135 (Version 1)
Quarter: 2021Q2

REPORT INFORMATION
  Report Type: Report from Study
  Country: None (occurrence: US)
  Receive Date: 20210602
  Receipt Date: 20210602
  Transmission Date: 20210717
  Serious: No
  Sender: FDA-Public Use
  Company Number: US-MDD US OPERATIONS-MDD202007-001544

PATIENT
  Age: 72 Year
  Sex: Male

DRUGS (6)
  1. PRAMIPEXOLE. [Concomitant]
     Active Substance: PRAMIPEXOLE
  2. REMERON [Concomitant]
     Active Substance: MIRTAZAPINE
     Dosage: NOT PROVIDED
  3. APOKYN [Suspect]
     Active Substance: APOMORPHINE HYDROCHLORIDE
     Indication: PARKINSON^S DISEASE
     Route: 058
     Dates: start: 20200727
  4. ATIVAN [Concomitant]
     Active Substance: LORAZEPAM
     Dosage: NOT PROVIDED
  5. RESTORIL [Concomitant]
     Active Substance: TEMAZEPAM
     Dosage: NOT PROVIDED
  6. CARB/LEVODOPA [Concomitant]
     Dosage: 25/250MG

REACTIONS (5)
  - Somnolence [Recovered/Resolved]
  - Nausea [Recovered/Resolved]
  - Middle insomnia [Recovered/Resolved]
  - Feeling abnormal [Recovered/Resolved]
  - Abdominal discomfort [Recovered/Resolved]

NARRATIVE: CASE EVENT DATE: 20200727
